FAERS Safety Report 12477691 (Version 1)
Quarter: 2016Q2

REPORT INFORMATION
  Report Type: Spontaneous
  Country: US (occurrence: US)
  Receive Date: 20160617
  Receipt Date: 20160617
  Transmission Date: 20160815
  Serious: Yes (Hospitalization, Other)
  Sender: FDA-Public Use
  Company Number: US-PFIZER INC-2016301376

PATIENT
  Age: 57 Year
  Sex: Female
  Weight: 106 kg

DRUGS (1)
  1. REVATIO [Suspect]
     Active Substance: SILDENAFIL CITRATE
     Dosage: 20 MG, UNK

REACTIONS (3)
  - Vascular pseudoaneurysm [Unknown]
  - Thrombosis [Unknown]
  - Cerebrovascular accident [Unknown]
